FAERS Safety Report 9311000 (Version 1)
Quarter: 2013Q1

REPORT INFORMATION
  Report Type: Spontaneous
  Country: JP (occurrence: None)
  Receive Date: 20130207
  Receipt Date: 20130207
  Transmission Date: 20140127
  Serious: Yes (Hospitalization)
  Sender: FDA-Public Use
  Company Number: 2013SA004145

PATIENT
  Age: 63 Year
  Sex: Female

DRUGS (4)
  1. TAXOTERE (DOCETAXEL) [Suspect]
     Indication: BREAST CANCER
     Dates: start: 20130115, end: 20130115
  2. FLUOROURACIL [Concomitant]
  3. EPIRUBICIN [Concomitant]
  4. CYCLOPHOSPHAMIDE [Concomitant]

REACTIONS (1)
  - Extravasation [None]
